FAERS Safety Report 4311461-0 (Version None)
Quarter: 2004Q1

REPORT INFORMATION
  Report Type: 
  Country: None (occurrence: None)
  Receive Date: 20040302
  Receipt Date: 20040114
  Transmission Date: 20041129
  Serious: No
  Sender: FDA-Public Use
  Company Number: 200325205BWH

PATIENT
  Age: 58 Year
  Sex: Male

DRUGS (7)
  1. LEVITRA [Suspect]
     Indication: ERECTILE DYSFUNCTION
     Dosage: 10 MG, QD, ORAL; 10 MG, PRN, ORAL; 10 MG, PRN, ORAL
     Route: 048
     Dates: start: 20030926
  2. LEVITRA [Suspect]
     Indication: ERECTILE DYSFUNCTION
     Dosage: 10 MG, QD, ORAL; 10 MG, PRN, ORAL; 10 MG, PRN, ORAL
     Route: 048
     Dates: start: 20030928
  3. LEVITRA [Suspect]
     Indication: ERECTILE DYSFUNCTION
     Dosage: 10 MG, QD, ORAL; 10 MG, PRN, ORAL; 10 MG, PRN, ORAL
     Route: 048
     Dates: start: 20030928
  4. VIAGRA [Concomitant]
  5. CAVERJECT [Concomitant]
  6. CELEBREX [Concomitant]
  7. PREVACID [Concomitant]

REACTIONS (1)
  - ERECTILE DYSFUNCTION [None]
